FAERS Safety Report 4365423-8 (Version None)
Quarter: 2004Q2

REPORT INFORMATION
  Report Type: 
  Country: None (occurrence: None)
  Receive Date: 20040520
  Receipt Date: 20040505
  Transmission Date: 20050107
  Serious: Yes (Hospitalization)
  Sender: FDA-Public Use
  Company Number: US-SHR-04-025043

PATIENT
  Age: 56 Year
  Sex: Male

DRUGS (22)
  1. BETASERON [Suspect]
     Indication: MULTIPLE SCLEROSIS
     Dosage: 8 MIU, EVERY 2D, SUBCUTANEOUS
     Route: 058
     Dates: start: 20040106
  2. BACLOFEN [Concomitant]
  3. VALIUM [Concomitant]
  4. ZANAFLEX [Concomitant]
  5. CELEBREX [Concomitant]
  6. NORVASC /DEN/ (AMLODIPINE BESILATE) [Concomitant]
  7. CARDIZEM [Concomitant]
  8. BEROCCA (MAGNESIUM) [Concomitant]
  9. VISTARIL [Concomitant]
  10. QUININE (QUININE) [Concomitant]
  11. UNIPHYL [Concomitant]
  12. ADVAIR DISKUS [Concomitant]
  13. ALBUTEROL [Concomitant]
  14. ATROVENT [Concomitant]
  15. RHINOCORT [Concomitant]
  16. NEXIUM [Concomitant]
  17. ACIPHEX [Concomitant]
  18. LEVITRA [Concomitant]
  19. LIPITOR [Concomitant]
  20. VITAMIN E [Concomitant]
  21. ZYRTEC-D /MEX/ (PSEUDOEPHEDRINE HYDROCHLORIDE, CETIRIZINE HYDROCHLORID [Concomitant]
  22. SINGULAIR ^MERCK^ (MONTELUKAST SODIUM) [Concomitant]

REACTIONS (9)
  - INJECTION SITE BURNING [None]
  - INJECTION SITE CELLULITIS [None]
  - INJECTION SITE ERYTHEMA [None]
  - INJECTION SITE PAIN [None]
  - INJECTION SITE SWELLING [None]
  - INJECTION SITE THROMBOSIS [None]
  - INJECTION SITE WARMTH [None]
  - MEDICATION ERROR [None]
  - TREMOR [None]
